FAERS Safety Report 19180409 (Version 1)
Quarter: 2021Q2

REPORT INFORMATION
  Report Type: Spontaneous
  Country: US (occurrence: US)
  Receive Date: 20210426
  Receipt Date: 20210426
  Transmission Date: 20210717
  Serious: Yes (Disabling, Other)
  Sender: FDA-Public Use
  Company Number: US-SA-2021SA132625

PATIENT

DRUGS (1)
  1. ZANTAC [Suspect]
     Active Substance: RANITIDINE HYDROCHLORIDE
     Dates: start: 2011

REACTIONS (8)
  - Injury [Unknown]
  - Anxiety [Unknown]
  - Illness [Unknown]
  - Pain [Unknown]
  - Bladder cancer recurrent [Unknown]
  - Mental disorder [Unknown]
  - Disability [Unknown]
  - Emotional distress [Unknown]

NARRATIVE: CASE EVENT DATE: 20180425
